FAERS Safety Report 23379557 (Version 3)
Quarter: 2024Q2

REPORT INFORMATION
  Report Type: Spontaneous
  Country: US (occurrence: US)
  Receive Date: 20240108
  Receipt Date: 20240624
  Transmission Date: 20240716
  Serious: Yes (Hospitalization, Other)
  Sender: FDA-Public Use
  Company Number: US-SA-2023SA399638

PATIENT

DRUGS (1)
  1. ALDURAZYME [Suspect]
     Active Substance: LARONIDASE
     Indication: Mucopolysaccharidosis I
     Dosage: 20.3 MG, QW
     Route: 042
     Dates: start: 201705

REACTIONS (8)
  - Pneumonia [Unknown]
  - Dyspnoea [Unknown]
  - Pulmonary oedema [Unknown]
  - Agnosia [Not Recovered/Not Resolved]
  - Heart valve incompetence [Unknown]
  - Memory impairment [Not Recovered/Not Resolved]
  - Infusion site pain [Unknown]
  - Injection site reaction [Unknown]

NARRATIVE: CASE EVENT DATE: 20240301
